FAERS Safety Report 4393779-9 (Version None)
Quarter: 2004Q3

REPORT INFORMATION
  Report Type: 
  Country: None (occurrence: None)
  Receive Date: 20040706
  Receipt Date: 20040621
  Transmission Date: 20050211
  Serious: Yes (Life-Threatening)
  Sender: FDA-Public Use
  Company Number: 02100-JPN-04-0168

PATIENT
  Age: 80 Year
  Sex: Female

DRUGS (4)
  1. CILOSTAZOL [Suspect]
     Indication: CEREBRAL INFARCTION
     Dosage: 100 MG
     Route: 048
     Dates: start: 20040619, end: 20040619
  2. CEFMETAZOLE SODIUM [Suspect]
     Indication: URINARY TRACT INFECTION
     Dosage: 2 G; IV DRIP
     Route: 041
     Dates: start: 20040618, end: 20040621
  3. NICERGOLINE [Concomitant]
  4. SODIUM OZAGREL [Concomitant]

REACTIONS (10)
  - ANAPHYLACTIC SHOCK [None]
  - ARTHRALGIA [None]
  - BACK PAIN [None]
  - BLOOD PRESSURE DECREASED [None]
  - CHEST PAIN [None]
  - CHONDROCALCINOSIS PYROPHOSPHATE [None]
  - FEELING COLD [None]
  - PULMONARY CONGESTION [None]
  - SHOCK [None]
  - VOMITING [None]
